FAERS Safety Report 14157103 (Version 4)
Quarter: 2018Q1

REPORT INFORMATION
  Report Type: Spontaneous
  Country: US (occurrence: US)
  Receive Date: 20171103
  Receipt Date: 20180302
  Transmission Date: 20180508
  Serious: Yes (Death, Hospitalization, Other)
  Sender: FDA-Public Use
  Company Number: US-PFIZER INC-2017472146

PATIENT
  Age: 73 Year
  Sex: Female
  Weight: 64.85 kg

DRUGS (1)
  1. IBRANCE [Suspect]
     Active Substance: PALBOCICLIB
     Indication: BREAST CANCER METASTATIC
     Dosage: 125 MG, CYCLIC (DAY 1-21 Q28 DAYS)
     Route: 048
     Dates: start: 20171018, end: 201712

REACTIONS (9)
  - Renal impairment [Unknown]
  - Platelet count decreased [Not Recovered/Not Resolved]
  - Colitis [Not Recovered/Not Resolved]
  - Musculoskeletal chest pain [Unknown]
  - Death [Fatal]
  - Constipation [Unknown]
  - Haemoptysis [Unknown]
  - Fatigue [Unknown]
  - White blood cell count decreased [Not Recovered/Not Resolved]

NARRATIVE: CASE EVENT DATE: 2017
